FAERS Safety Report 9644908 (Version 1)
Quarter: 2013Q4

REPORT INFORMATION
  Report Type: Spontaneous
  Country: US (occurrence: None)
  Receive Date: 20131023
  Receipt Date: 20131023
  Transmission Date: 20140711
  Serious: Yes (Other)
  Sender: FDA-Public Use
  Company Number: None

PATIENT
  Age: 8 Year
  Sex: Male
  Weight: 31.75 kg

DRUGS (1)
  1. MONTELUKAST 5MG QUALITEST [Suspect]
     Indication: ASTHMA
     Dosage: ONE PILL ONCE DAILY TAKEN BY MOUTH
     Route: 048
     Dates: start: 20090110, end: 20131021

REACTIONS (4)
  - Depression [None]
  - Depressed mood [None]
  - Suicidal ideation [None]
  - Product substitution issue [None]
